FAERS Safety Report 24576458 (Version 1)
Quarter: 2024Q4

REPORT INFORMATION
  Report Type: Spontaneous
  Country: CN (occurrence: CN)
  Receive Date: 20241104
  Receipt Date: 20241104
  Transmission Date: 20250115
  Serious: Yes (Hospitalization, Other)
  Sender: PFIZER
  Company Number: CN-PFIZER INC-PV202400141821

PATIENT
  Age: 24 Year
  Sex: Female
  Weight: 68 kg

DRUGS (1)
  1. METHOTREXATE SODIUM [Suspect]
     Active Substance: METHOTREXATE SODIUM
     Indication: Abortion induced
     Dosage: 0.085 G, 1X/DAY
     Route: 030
     Dates: start: 20241025, end: 20241025

REACTIONS (8)
  - Rash [Recovering/Resolving]
  - Pruritus [Recovering/Resolving]
  - Oropharyngeal pain [Recovering/Resolving]
  - Lip swelling [Recovering/Resolving]
  - Mouth swelling [Recovering/Resolving]
  - Papule [Recovering/Resolving]
  - Hypersensitivity [Recovering/Resolving]
  - Off label use [Unknown]

NARRATIVE: CASE EVENT DATE: 20241025
